FAERS Safety Report 8564582-0 (Version None)
Quarter: 2012Q3

REPORT INFORMATION
  Report Type: 
  Country: None (occurrence: None)
  Receive Date: 20120803
  Receipt Date: 20120801
  Transmission Date: 20120928
  Serious: Yes (Hospitalization, Other)
  Sender: FDA-Public Use
  Company Number: JP-PFIZER INC-2012187366

PATIENT
  Age: 81 Year
  Sex: Female

DRUGS (1)
  1. ZOLOFT [Suspect]
     Dosage: 25 MG/DAY
     Route: 048

REACTIONS (3)
  - DEMENTIA [None]
  - FEMUR FRACTURE [None]
  - JOINT DISLOCATION [None]
